FAERS Safety Report 8045310-4 (Version None)
Quarter: 2012Q1

REPORT INFORMATION
  Report Type: 
  Country: None (occurrence: None)
  Receive Date: 20120113
  Receipt Date: 20120110
  Transmission Date: 20120608
  Serious: Yes (Death)
  Sender: FDA-Public Use
  Company Number: DE-ROCHE-1029234

PATIENT
  Sex: Male
  Weight: 78 kg

DRUGS (19)
  1. CARBOPLATIN [Suspect]
     Indication: NON-SMALL CELL LUNG CANCER
     Dosage: AUC 5
     Route: 042
     Dates: start: 20111209
  2. ENOXAPARIN SODIUM [Concomitant]
  3. PEMETREXED DISODIUM [Suspect]
     Indication: NON-SMALL CELL LUNG CANCER
     Route: 042
     Dates: start: 20111209
  4. NOVALGIN [Concomitant]
  5. TORSEMIDE [Concomitant]
  6. OMEPRAZOLE [Concomitant]
  7. THEOPHYLLINE [Concomitant]
  8. BISOPROLOL FUMARATE [Concomitant]
  9. SPIRIVA [Concomitant]
     Dates: start: 20050101
  10. AVASTIN [Suspect]
     Indication: NON-SMALL CELL LUNG CANCER
     Route: 042
     Dates: start: 20111209
  11. HYDROCHLOROTHIAZIDE [Concomitant]
  12. MOXONIDIN [Concomitant]
  13. LEVOTHYROXINE SODIUM [Concomitant]
  14. SIMVASTATIN [Concomitant]
  15. ALLOPURINOL [Concomitant]
  16. MICARDIS [Concomitant]
     Dates: start: 20090101
  17. AMLODIPINE [Concomitant]
     Dates: start: 20090101
  18. ATMADISC [Concomitant]
     Dosage: 50/500
  19. ALBUTEROL SULFATE AUTOHALER [Concomitant]
     Dates: start: 20050101

REACTIONS (1)
  - EPISTAXIS [None]
